FAERS Safety Report 9134898 (Version 1)
Quarter: 2013Q1

REPORT INFORMATION
  Report Type: Spontaneous
  Country: GB (occurrence: GB)
  Receive Date: 20130304
  Receipt Date: 20130304
  Transmission Date: 20140127
  Serious: Yes (Death)
  Sender: FDA-Public Use
  Company Number: GB-PFIZER INC-2013073540

PATIENT
  Age: 70 Year
  Sex: Male

DRUGS (7)
  1. AMIODARONE HCL [Suspect]
     Indication: ATRIAL FIBRILLATION
     Dosage: 200 MG, 2X/DAY
     Dates: end: 20121124
  2. AMIODARONE HCL [Suspect]
     Dosage: 200 MG, 1X/DAY
  3. AMIODARONE HCL [Suspect]
     Dosage: 400 MG, DAILY
  4. CLOPIDOGREL [Concomitant]
  5. ATORVASTATIN [Concomitant]
  6. LEVOTHYROXINE [Concomitant]
  7. TESTOSTERONE [Concomitant]

REACTIONS (4)
  - Death [Fatal]
  - Hepatic cirrhosis [Fatal]
  - Encephalopathy [Fatal]
  - Hepatorenal syndrome [Fatal]
